FAERS Safety Report 5659745-8 (Version None)
Quarter: 2008Q1

REPORT INFORMATION
  Report Type: 
  Country: None (occurrence: None)
  Receive Date: 20080311
  Receipt Date: 20080218
  Transmission Date: 20080703
  Serious: No
  Sender: FDA-Public Use
  Company Number: US-BAYER-200712113BCC

PATIENT
  Age: 41 Year
  Sex: Male
  Weight: 73 kg

DRUGS (1)
  1. ALEVE [Suspect]
     Indication: BACK DISORDER
     Dosage: TOTAL DAILY DOSE: 1540 MG  UNIT DOSE: 220 MG
     Route: 048
     Dates: start: 20070627

REACTIONS (4)
  - FAECES DISCOLOURED [None]
  - NEPHROLITHIASIS [None]
  - PYREXIA [None]
  - STOMACH DISCOMFORT [None]
